FAERS Safety Report 4354026-7 (Version None)
Quarter: 2004Q2

REPORT INFORMATION
  Report Type: 
  Country: None (occurrence: None)
  Receive Date: 20040430
  Receipt Date: 20040325
  Transmission Date: 20050107
  Serious: Yes (Hospitalization)
  Sender: FDA-Public Use
  Company Number: 6008118

PATIENT
  Age: 61 Year
  Sex: Female

DRUGS (3)
  1. LODOZ 2.5 MG/6.25 MG (TABLETS) (HYDROCHLOROTHIAZIDE, BISOPROLOL FUMARA [Suspect]
     Indication: HYPERTENSION
     Dosage: (1 IN 1D)
     Route: 048
     Dates: start: 20010715, end: 20030415
  2. AMLODIPINE BESYLATE [Suspect]
     Indication: HYPERTENSION
     Dosage: 5,00 MG (5 MG, 1 IN 1 D)
     Dates: start: 20010615, end: 20031015
  3. HYTACAND (HYDROCHLOROTHIAZIDE, CANDESARTAN CILEXETIL) [Suspect]
     Indication: HYPERTENSION
     Dates: start: 20030401, end: 20031001

REACTIONS (1)
  - RED BLOOD CELL COUNT INCREASED [None]
